FAERS Safety Report 9306449 (Version 1)
Quarter: 2013Q2

REPORT INFORMATION
  Report Type: Spontaneous
  Country: US (occurrence: None)
  Receive Date: 20130501
  Receipt Date: 20130501
  Transmission Date: 20140414
  Serious: Yes (Disabling)
  Sender: FDA-Public Use
  Company Number: 2013PROUSA02759

PATIENT
  Age: 75 Year
  Sex: Male
  Weight: 78 kg

DRUGS (7)
  1. PROVENGE (SIPULEUCEL-T) SUSPENSION, 250ML [Suspect]
     Indication: PROSTATE CANCER METASTATIC
     Route: 042
     Dates: start: 20130408, end: 20130408
  2. ELIGARD (LEUPRORELIN ACETATE) [Concomitant]
  3. CYMBALTA (DULOXETINE HYDROCHLORIDE) [Concomitant]
  4. CELEBREX (CELECOXIB) [Concomitant]
  5. XGEVA (DENOSUMAB) [Concomitant]
  6. CRESTOR (ROSUVASTATIN CALCIUM) [Concomitant]
  7. MEGACE (MEGESTROL ACETATE) [Concomitant]

REACTIONS (5)
  - Abasia [None]
  - Psychomotor hyperactivity [None]
  - Bedridden [None]
  - Influenza like illness [None]
  - Pain [None]
